FAERS Safety Report 10592452 (Version 4)
Quarter: 2015Q1

REPORT INFORMATION
  Report Type: Spontaneous
  Country: JP (occurrence: JP)
  Receive Date: 20141119
  Receipt Date: 20150104
  Transmission Date: 20150720
  Serious: Yes (Hospitalization, Other)
  Sender: FDA-Public Use
  Company Number: PHHY2014JP104681

PATIENT
  Age: 58 Year
  Sex: Male

DRUGS (1)
  1. AFINITOR [Suspect]
     Active Substance: EVEROLIMUS
     Indication: METASTATIC RENAL CELL CARCINOMA
     Dosage: 10 MG, QD
     Route: 048
     Dates: start: 20140424, end: 20140925

REACTIONS (6)
  - Dyspnoea [Unknown]
  - Malignant neoplasm progression [Not Recovered/Not Resolved]
  - Pericardial effusion [Recovering/Resolving]
  - Pneumonia klebsiella [Unknown]
  - Cough [Unknown]
  - Interstitial lung disease [Recovering/Resolving]

NARRATIVE: CASE EVENT DATE: 20140630
